FAERS Safety Report 13978213 (Version 1)
Quarter: 2017Q3

REPORT INFORMATION
  Report Type: Spontaneous
  Country: IT (occurrence: IT)
  Receive Date: 20170915
  Receipt Date: 20170915
  Transmission Date: 20171128
  Serious: Yes (Death)
  Sender: FDA-Public Use
  Company Number: IT-PFIZER INC-548074

PATIENT
  Age: 8 Month
  Sex: Female

DRUGS (4)
  1. CARBOPLATIN. [Suspect]
     Active Substance: CARBOPLATIN
     Indication: NEUROBLASTOMA
     Dosage: 5.5 MG/KG, ON DAYS 1-2-3
  2. ETOPOSIDE. [Suspect]
     Active Substance: ETOPOSIDE
     Indication: NEUROBLASTOMA
     Dosage: 4.5 MG/KG, ON DAYS 1-2-3
  3. ETOPOSIDE. [Suspect]
     Active Substance: ETOPOSIDE
     Indication: NEPHROBLASTOMA
  4. CARBOPLATIN. [Suspect]
     Active Substance: CARBOPLATIN
     Indication: NEPHROBLASTOMA

REACTIONS (5)
  - Aplasia [Fatal]
  - Disseminated intravascular coagulation [Fatal]
  - Fungal infection [Fatal]
  - Pyrexia [Fatal]
  - Venoocclusive disease [Fatal]
